FAERS Safety Report 24815126 (Version 1)
Quarter: 2025Q1

REPORT INFORMATION
  Report Type: Report from Study
  Country: DE (occurrence: DE)
  Receive Date: 20250107
  Receipt Date: 20250107
  Transmission Date: 20250408
  Serious: Yes (Hospitalization)
  Sender: ABBVIE
  Company Number: DE-ABBVIE-6071207

PATIENT
  Age: 74 Year
  Sex: Female

DRUGS (1)
  1. FOSCARBIDOPA\FOSLEVODOPA [Suspect]
     Active Substance: FOSCARBIDOPA\FOSLEVODOPA
     Indication: Parkinson^s disease
     Route: 058
     Dates: start: 20241001

REACTIONS (3)
  - Infusion site abscess [Unknown]
  - Infusion site erythema [Unknown]
  - Infusion site induration [Unknown]

NARRATIVE: CASE EVENT DATE: 20250102
